FAERS Safety Report 12171784 (Version 1)
Quarter: 2016Q1

REPORT INFORMATION
  Report Type: Spontaneous
  Country: GB (occurrence: GB)
  Receive Date: 20160311
  Receipt Date: 20160311
  Transmission Date: 20160526
  Serious: Yes (Hospitalization, Other)
  Sender: FDA-Public Use
  Company Number: GB-TEVA-641133ACC

PATIENT
  Age: 87 Year
  Sex: Male

DRUGS (5)
  1. BISOPROLOL [Concomitant]
     Active Substance: BISOPROLOL
  2. DOXAZOSIN [Suspect]
     Active Substance: DOXAZOSIN\DOXAZOSIN MESYLATE
     Indication: HYPERTENSION
     Dosage: 4 MILLIGRAM DAILY; MODIFIED RELEASE
     Route: 048
     Dates: start: 20160127, end: 20160219
  3. ASPIRIN. [Concomitant]
     Active Substance: ASPIRIN
  4. MODURETIC 5-50 [Suspect]
     Active Substance: AMILORIDE HYDROCHLORIDE\HYDROCHLOROTHIAZIDE
     Indication: HYPERTENSION
     Dosage: EVERY MORNING
     Route: 048
     Dates: end: 20160219
  5. VITAMIN B COMPLEX STRONG [Concomitant]

REACTIONS (4)
  - Hypokalaemia [Recovering/Resolving]
  - Product substitution issue [Unknown]
  - Hyponatraemia [Recovering/Resolving]
  - Malaise [Recovering/Resolving]
